FAERS Safety Report 22279531 (Version 1)
Quarter: 2023Q2

REPORT INFORMATION
  Report Type: Spontaneous
  Country: US (occurrence: US)
  Receive Date: 20230503
  Receipt Date: 20230503
  Transmission Date: 20230722
  Serious: Yes (Other)
  Sender: FDA-Public Use
  Company Number: US-PFIZER INC-PV202300078516

PATIENT
  Age: 62 Year
  Sex: Male

DRUGS (1)
  1. MEKTOVI [Suspect]
     Active Substance: BINIMETINIB
     Dosage: 15 MG, 1X/DAY, (ONLY TAKING IT 1 TIME A DAY)

REACTIONS (4)
  - Knee operation [Unknown]
  - Gastric disorder [Unknown]
  - Off label use [Unknown]
  - Intentional product misuse [Unknown]
